FAERS Safety Report 7788140-0 (Version None)
Quarter: 2011Q3

REPORT INFORMATION
  Report Type: 
  Country: None (occurrence: None)
  Receive Date: 20110929
  Receipt Date: 20110929
  Transmission Date: 20111222
  Serious: No
  Sender: FDA-Public Use
  Company Number: None

PATIENT
  Sex: Female
  Weight: 66.8 kg

DRUGS (2)
  1. PACLITAXEL [Suspect]
     Dosage: 20 MG
     Dates: end: 20110920
  2. CISPLATIN [Suspect]
     Dosage: 128 MG
     Dates: end: 20110921

REACTIONS (6)
  - BLOOD PRESSURE DECREASED [None]
  - PYREXIA [None]
  - ATELECTASIS [None]
  - ABDOMINAL PAIN [None]
  - DEHYDRATION [None]
  - URINE LEUKOCYTE ESTERASE POSITIVE [None]
